FAERS Safety Report 10679977 (Version 1)
Quarter: 2014Q4

REPORT INFORMATION
  Report Type: Spontaneous
  Country: US (occurrence: US)
  Receive Date: 20141229
  Receipt Date: 20141229
  Transmission Date: 20150529
  Serious: No
  Sender: FDA-Public Use
  Company Number: US-BAYER-2014-185831

PATIENT
  Age: 31 Year
  Sex: Male
  Weight: 172.34 kg

DRUGS (5)
  1. ALEVE [Suspect]
     Active Substance: NAPROXEN SODIUM
     Indication: ANALGESIC THERAPY
     Dosage: 3-4 DF, BID
     Route: 048
     Dates: start: 20141101, end: 201411
  2. MORPHINE [Concomitant]
     Active Substance: MORPHINE
  3. ALEVE [Suspect]
     Active Substance: NAPROXEN SODIUM
     Indication: ANALGESIC THERAPY
     Dosage: UNK UNK, QD
     Route: 048
     Dates: start: 201411, end: 201411
  4. OXYCODONE [Concomitant]
     Active Substance: OXYCODONE
  5. ALEVE [Suspect]
     Active Substance: NAPROXEN SODIUM
     Indication: ANALGESIC THERAPY
     Dosage: UNK UNK, QD
     Route: 048

REACTIONS (4)
  - Therapeutic response unexpected [None]
  - Incorrect dose administered [None]
  - Incorrect drug administration duration [None]
  - Incorrect drug administration duration [None]

NARRATIVE: CASE EVENT DATE: 201411
